FAERS Safety Report 19591763 (Version 2)
Quarter: 2021Q3

REPORT INFORMATION
  Report Type: Report from Study
  Country: None (occurrence: FR)
  Receive Date: 20210721
  Receipt Date: 20210723
  Transmission Date: 20211014
  Serious: Yes (Hospitalization)
  Sender: FDA-Public Use
  Company Number: FR-ABBVIE-21P-056-3839002-00

PATIENT
  Age: 24 Year
  Sex: Male
  Weight: 92 kg

DRUGS (10)
  1. COLLYRE (CICLOSPORINE) [Concomitant]
     Indication: ALLERGIC KERATITIS
     Dates: start: 20210208
  2. UPADACITINIB [Suspect]
     Active Substance: UPADACITINIB
     Indication: DERMATITIS ATOPIC
     Route: 048
     Dates: start: 20200525, end: 20210322
  3. BILASKA [Concomitant]
     Active Substance: BILASTINE
     Indication: KERATITIS
  4. BILASKA [Concomitant]
     Active Substance: BILASTINE
     Indication: CONJUNCTIVITIS
  5. UPADACITINIB [Suspect]
     Active Substance: UPADACITINIB
     Route: 048
     Dates: start: 20210322, end: 20210611
  6. UPADACITINIB [Suspect]
     Active Substance: UPADACITINIB
     Route: 050
     Dates: start: 20210621
  7. CYCLOSPORINE. [Concomitant]
     Active Substance: CYCLOSPORINE
     Indication: DERMATITIS ATOPIC
     Dates: start: 201907, end: 202012
  8. BETNEVAL [Concomitant]
     Active Substance: BETAMETHASONE VALERATE
     Indication: DERMATITIS ATOPIC
     Dates: start: 20200914
  9. BILASKA [Concomitant]
     Active Substance: BILASTINE
     Indication: RHINITIS ALLERGIC
     Dates: start: 20170101
  10. RHINOCORT [Concomitant]
     Active Substance: BUDESONIDE
     Indication: RHINITIS ALLERGIC
     Dates: start: 20200914

REACTIONS (4)
  - Drug ineffective [Unknown]
  - Herpes ophthalmic [Recovered/Resolved]
  - Dermatitis atopic [Not Recovered/Not Resolved]
  - Allergic keratitis [Not Recovered/Not Resolved]

NARRATIVE: CASE EVENT DATE: 20210308
